FAERS Safety Report 5912297-7 (Version None)
Quarter: 2008Q4

REPORT INFORMATION
  Report Type: 
  Country: None (occurrence: None)
  Receive Date: 20081008
  Receipt Date: 20080927
  Transmission Date: 20090506
  Serious: Yes (Hospitalization)
  Sender: FDA-Public Use
  Company Number: GB-ROCHE-588488

PATIENT
  Sex: Female
  Weight: 70 kg

DRUGS (6)
  1. ORLISTAT [Suspect]
     Indication: OBESITY
     Route: 048
     Dates: start: 20080423, end: 20080823
  2. ORLISTAT [Suspect]
     Route: 048
     Dates: start: 20080825
  3. EXEMESTANE [Concomitant]
     Indication: HYPERTENSION
     Dosage: REPORTED AS EXENESTANE
     Route: 048
  4. BENDROFLUMETHIAZIDE [Concomitant]
     Indication: HYPERTENSION
     Dosage: ALSO TAKEN FOR WATER RETENTION
     Route: 048
  5. CLOPIDOGREL [Concomitant]
     Indication: ANTICOAGULANT THERAPY
     Route: 048
  6. OMEPRAZOLE [Concomitant]
     Indication: HIATUS HERNIA
     Route: 048

REACTIONS (1)
  - MYOCARDIAL INFARCTION [None]
